FAERS Safety Report 15696537 (Version 1)
Quarter: 2018Q4

REPORT INFORMATION
  Report Type: Spontaneous
  Country: US (occurrence: US)
  Receive Date: 20181206
  Receipt Date: 20181206
  Transmission Date: 20190205
  Serious: No
  Sender: FDA-Public Use
  Company Number: US-ELI_LILLY_AND_COMPANY-US201812001892

PATIENT
  Age: 51 Year
  Sex: Female

DRUGS (23)
  1. CALCIUM [Concomitant]
     Active Substance: CALCIUM
  2. MYCOPHENOLATE [Concomitant]
     Active Substance: MYCOPHENOLIC ACID
  3. LIDOCAINE. [Concomitant]
     Active Substance: LIDOCAINE
  4. OMEPRAZOLE. [Concomitant]
     Active Substance: OMEPRAZOLE
  5. MORPHINE SULF [Concomitant]
     Active Substance: MORPHINE SULFATE
  6. OPSUMIT [Concomitant]
     Active Substance: MACITENTAN
  7. PROAIR HFA [Concomitant]
     Active Substance: ALBUTEROL SULFATE
  8. OXYCODONE [Concomitant]
     Active Substance: OXYCODONE
  9. NAPROXEN. [Concomitant]
     Active Substance: NAPROXEN
  10. IBUPROFEN. [Concomitant]
     Active Substance: IBUPROFEN
  11. VITAMIN D [ERGOCALCIFEROL] [Concomitant]
  12. ADCIRCA [Suspect]
     Active Substance: TADALAFIL
     Indication: PULMONARY ARTERIAL HYPERTENSION
     Dosage: UNK, UNKNOWN
     Route: 065
  13. AMBRISENTAN [Suspect]
     Active Substance: AMBRISENTAN
     Indication: PULMONARY ARTERIAL HYPERTENSION
     Dosage: 5 MG, DAILY
     Route: 065
     Dates: start: 20180628, end: 20181113
  14. DOXYCYCLINE. [Concomitant]
     Active Substance: DOXYCYCLINE
  15. PREDNISONE. [Concomitant]
     Active Substance: PREDNISONE
  16. OXYCODONE/APAP [OXYCODONE HYDROCHLORIDE;PARAC [Concomitant]
  17. PROAIR BRONQUIAL [Concomitant]
  18. NIFEDIPINE. [Concomitant]
     Active Substance: NIFEDIPINE
  19. LOSARTAN. [Concomitant]
     Active Substance: LOSARTAN
  20. AMBRISENTAN [Suspect]
     Active Substance: AMBRISENTAN
     Dosage: 10 MG, DAILY
     Route: 065
     Dates: start: 20180628
  21. AMOXICILLIN. [Concomitant]
     Active Substance: AMOXICILLIN
  22. LOSARTAN/HCTZ [Concomitant]
     Active Substance: HYDROCHLOROTHIAZIDE\LOSARTAN
  23. METRONIDAZOLE. [Concomitant]
     Active Substance: METRONIDAZOLE

REACTIONS (6)
  - Peripheral swelling [Unknown]
  - Abdominal distension [Unknown]
  - Swelling [Unknown]
  - Somnolence [Unknown]
  - Swelling face [Unknown]
  - Joint swelling [Unknown]

NARRATIVE: CASE EVENT DATE: 201807
